FAERS Safety Report 7692405-0 (Version None)
Quarter: 2011Q3

REPORT INFORMATION
  Report Type: 
  Country: None (occurrence: None)
  Receive Date: 20110818
  Receipt Date: 20110811
  Transmission Date: 20111222
  Serious: Yes (Hospitalization)
  Sender: FDA-Public Use
  Company Number: US-US-EMD SERONO, INC.-7076496

PATIENT
  Sex: Female

DRUGS (2)
  1. REBIF [Suspect]
     Indication: MULTIPLE SCLEROSIS
     Route: 058
     Dates: start: 20070205
  2. COUMADIN [Concomitant]
     Indication: THROMBOSIS
     Dates: start: 20060101

REACTIONS (3)
  - FEMUR FRACTURE [None]
  - FALL [None]
  - BLOOD DISORDER [None]
